FAERS Safety Report 9672319 (Version 1)
Quarter: 2013Q4

REPORT INFORMATION
  Report Type: Spontaneous
  Country: GB (occurrence: GB)
  Receive Date: 20131106
  Receipt Date: 20131106
  Transmission Date: 20140711
  Serious: Yes (Death, Other)
  Sender: FDA-Public Use
  Company Number: PHHY2013GB123498

PATIENT
  Age: 70 Year
  Sex: Male

DRUGS (9)
  1. METHOTREXATE [Suspect]
     Indication: PSORIATIC ARTHROPATHY
     Route: 030
     Dates: start: 20051107
  2. ENBREL [Suspect]
     Indication: PSORIATIC ARTHROPATHY
     Route: 030
     Dates: start: 20130808
  3. AMITRIPTYLINE [Concomitant]
     Dosage: 25 MG, QD (AT NIGHT)
  4. ASPIRIN [Concomitant]
     Dosage: 75 MG, QD (IN THE MORNING)
  5. BUPRENORPHINE [Concomitant]
     Dosage: 25 UG, UNK
  6. CLENIL MODULITE [Concomitant]
     Route: 055
  7. NAPROXEN [Concomitant]
     Dosage: 250 MG, BID
  8. OMEPRAZOLE [Concomitant]
     Dosage: 10 MG, UNK
  9. RAMIPRIL [Concomitant]
     Dosage: 10 MG, QD (IN THE MORINING)

REACTIONS (2)
  - Pulmonary fibrosis [Fatal]
  - Cough [Not Recovered/Not Resolved]
